FAERS Safety Report 9209764 (Version 3)
Quarter: 2013Q2

REPORT INFORMATION
  Report Type: Report from Study
  Country: CA (occurrence: CA)
  Receive Date: 20130404
  Receipt Date: 20130501
  Transmission Date: 20140414
  Serious: Yes (Death, Hospitalization, Other)
  Sender: FDA-Public Use
  Company Number: CA-ABBOTT-13P-028-1071016-00

PATIENT
  Age: 88 Year
  Sex: Male

DRUGS (10)
  1. LUPRON DEPOT [Suspect]
     Indication: PROSTATE CANCER
     Route: 058
     Dates: start: 20120731, end: 20130403
  2. NITROSPRAY [Concomitant]
     Indication: ANGINA PECTORIS
     Dosage: SPRAY
     Route: 060
     Dates: start: 2004
  3. SENOKOT [Concomitant]
     Indication: CONSTIPATION
     Dosage: AT BEDTIME
     Route: 048
     Dates: start: 201206
  4. VITAMIN D NOS [Concomitant]
     Indication: PRODUCT USED FOR UNKNOWN INDICATION
     Dosage: ONCE ON SUNDAY
     Route: 048
  5. CALCIUM [Concomitant]
     Indication: PRODUCT USED FOR UNKNOWN INDICATION
     Dosage: AT BEDTIME
     Route: 048
  6. NASONEX [Concomitant]
     Indication: NASAL CONGESTION
     Dosage: 2 QAM
     Route: 055
     Dates: start: 2009
  7. ATORVASTATIN [Concomitant]
     Indication: BLOOD CHOLESTEROL INCREASED
     Dosage: AT BEDTIME
     Route: 048
     Dates: start: 2002
  8. ASAPHEN [Concomitant]
     Indication: CORONARY ARTERY DISEASE
     Dosage: QAM
     Route: 048
     Dates: start: 2002
  9. NITRODUR [Concomitant]
     Indication: ANGINA PECTORIS
     Dosage: PATCH
     Route: 062
     Dates: start: 2004
  10. TIMOPTIC-XE [Concomitant]
     Indication: GLAUCOMA
     Dosage: AT BEDTIME
     Route: 047
     Dates: start: 2003

REACTIONS (6)
  - Disease progression [Fatal]
  - Prostatomegaly [Not Recovered/Not Resolved]
  - Bladder obstruction [Not Recovered/Not Resolved]
  - Haematuria [Recovered/Resolved]
  - Prostatic specific antigen increased [Unknown]
  - Pyrexia [Unknown]
